FAERS Safety Report 25320174 (Version 1)
Quarter: 2025Q2

REPORT INFORMATION
  Report Type: Spontaneous
  Country: US (occurrence: US)
  Receive Date: 20250515
  Receipt Date: 20250515
  Transmission Date: 20250716
  Serious: No
  Sender: JOHNSON AND JOHNSON
  Company Number: US-JNJFOC-20250513459

PATIENT
  Sex: Male

DRUGS (1)
  1. XARELTO [Suspect]
     Active Substance: RIVAROXABAN
     Indication: Product used for unknown indication
     Route: 048

REACTIONS (5)
  - Muscle spasms [Recovering/Resolving]
  - Water pollution [Recovering/Resolving]
  - Feeding disorder [Recovering/Resolving]
  - Vomiting [Recovering/Resolving]
  - Dyspepsia [Recovering/Resolving]
